FAERS Safety Report 7263187-1 (Version None)
Quarter: 2011Q1

REPORT INFORMATION
  Report Type: 
  Country: None (occurrence: None)
  Receive Date: 20110130
  Receipt Date: 20101012
  Transmission Date: 20110831
  Serious: No
  Sender: FDA-Public Use
  Company Number: US-ABBOTT-10P-163-0677901-00

PATIENT
  Age: 34 Year
  Sex: Male

DRUGS (4)
  1. WELLBUTRIN [Concomitant]
     Indication: DEPRESSION
  2. HUMIRA [Suspect]
     Indication: BACK PAIN
  3. HUMIRA [Suspect]
     Indication: ANKYLOSING SPONDYLITIS
  4. HUMIRA [Suspect]
     Indication: JOINT STIFFNESS
     Dates: start: 20101011

REACTIONS (1)
  - INJECTION SITE PAIN [None]
